FAERS Safety Report 6028771-1 (Version None)
Quarter: 2009Q1

REPORT INFORMATION
  Report Type: 
  Country: None (occurrence: None)
  Receive Date: 20090106
  Receipt Date: 20081229
  Transmission Date: 20090719
  Serious: Yes (Death)
  Sender: FDA-Public Use
  Company Number: B0502448A

PATIENT
  Age: 42 Year
  Sex: Male

DRUGS (8)
  1. SALMETEROL/FLUTICASONE PROPIONATE 50/500UG [Suspect]
     Indication: ASTHMA
     Dosage: 500MCG TWICE PER DAY
     Route: 055
     Dates: start: 20071214, end: 20071228
  2. ALCOHOL [Suspect]
  3. THEOPHYLLINE [Concomitant]
     Indication: ASTHMA
     Dosage: 400MG PER DAY
     Route: 048
     Dates: start: 20071214, end: 20071228
  4. KIPRES [Concomitant]
     Indication: ASTHMA
     Dosage: 10MG PER DAY
     Route: 048
     Dates: start: 20071120, end: 20071128
  5. MEPTIN AIR [Concomitant]
     Indication: ASTHMA
     Dosage: 10MCG PER DAY
     Route: 055
     Dates: start: 20070705
  6. DIGOSIN [Concomitant]
     Indication: ARRHYTHMIA
     Dosage: .25MG PER DAY
     Route: 048
     Dates: start: 20071120, end: 20071228
  7. ASPIRIN [Concomitant]
     Indication: ARRHYTHMIA
     Dosage: 100MG PER DAY
     Route: 048
     Dates: start: 20071120, end: 20071228
  8. DISOPYRAMIDE [Concomitant]
     Indication: ARRHYTHMIA
     Dosage: 300MG PER DAY
     Route: 048
     Dates: start: 20071120, end: 20071228

REACTIONS (1)
  - ASTHMA [None]
